FAERS Safety Report 10179132 (Version 2)
Quarter: 2014Q2

REPORT INFORMATION
  Report Type: Report from Study
  Country: AM (occurrence: AM)
  Receive Date: 20140519
  Receipt Date: 20140519
  Transmission Date: 20141212
  Serious: Yes (Other)
  Sender: FDA-Public Use
  Company Number: AM-PFIZER INC-2014125422

PATIENT
  Sex: 0

DRUGS (1)
  1. METHYLPREDNISOLONE [Suspect]
     Indication: INFANTILE SPASMS
     Dosage: 8 MG, 4X/DAY
     Route: 048

REACTIONS (1)
  - Pneumonia [Unknown]
